FAERS Safety Report 18784671 (Version 2)
Quarter: 2021Q1

REPORT INFORMATION
  Report Type: Report from Study
  Country: PL (occurrence: PL)
  Receive Date: 20210125
  Receipt Date: 20210210
  Transmission Date: 20210419
  Serious: Yes (Hospitalization)
  Sender: FDA-Public Use
  Company Number: PL-SHIRE-PL202002040

PATIENT
  Sex: Male

DRUGS (2)
  1. IDURSULFASE [Suspect]
     Active Substance: IDURSULFASE
     Indication: MUCOPOLYSACCHARIDOSIS II
     Dosage: UNK
     Route: 042
     Dates: start: 20121205
  2. IDURSULFASE [Suspect]
     Active Substance: IDURSULFASE
     Dosage: UNK, 1/WEEK
     Route: 042
     Dates: start: 20120613, end: 20130724

REACTIONS (5)
  - Loss of consciousness [Unknown]
  - Epilepsy [Unknown]
  - Choking [Unknown]
  - Dorsal ramus syndrome [Unknown]
  - Dysphagia [Unknown]
